FAERS Safety Report 18351504 (Version 1)
Quarter: 2020Q4

REPORT INFORMATION
  Report Type: Spontaneous
  Country: US (occurrence: US)
  Receive Date: 20201007
  Receipt Date: 20201007
  Transmission Date: 20210114
  Serious: No
  Sender: FDA-Public Use
  Company Number: US-SA-2020SA273653

PATIENT

DRUGS (2)
  1. SARCLISA [Suspect]
     Active Substance: ISATUXIMAB-IRFC
  2. THALIDOMIDE [Concomitant]
     Active Substance: THALIDOMIDE
     Dosage: 4 MG

REACTIONS (1)
  - White blood cell count decreased [Unknown]
